FAERS Safety Report 11362648 (Version 2)
Quarter: 2019Q3

REPORT INFORMATION
  Report Type: Report from Study
  Country: CA (occurrence: CA)
  Receive Date: 20150810
  Receipt Date: 20190709
  Transmission Date: 20191004
  Serious: Yes (Other)
  Sender: FDA-Public Use
  Company Number: CA-GILEAD-2014-0116130

PATIENT
  Age: 66 Year
  Sex: Male

DRUGS (14)
  1. FOLIC ACID. [Concomitant]
     Active Substance: FOLIC ACID
     Dosage: UNK
  2. FUROSEMIDE. [Concomitant]
     Active Substance: FUROSEMIDE
     Dosage: UNK
  3. CLOPIDOGREL [Concomitant]
     Active Substance: CLOPIDOGREL BISULFATE
     Dosage: UNK
  4. PANTOPRAZOLE [Concomitant]
     Active Substance: PANTOPRAZOLE
     Dosage: UNK
  5. PROPRANOLOL [Concomitant]
     Active Substance: PROPRANOLOL HYDROCHLORIDE
     Dosage: UNK
  6. VITAMIN B12 [Concomitant]
     Active Substance: CYANOCOBALAMIN
  7. SPIRONOLACTONE. [Suspect]
     Active Substance: SPIRONOLACTONE
     Indication: PRODUCT USED FOR UNKNOWN INDICATION
     Dosage: 25 MG, UNK
     Route: 065
  8. LACTULOSE. [Concomitant]
     Active Substance: LACTULOSE
     Dosage: UNK
  9. MULTIVITAMIN                       /00097801/ [Concomitant]
     Active Substance: VITAMINS
  10. SOFOSBUVIR [Suspect]
     Active Substance: SOFOSBUVIR
     Indication: HEPATITIS C
     Dosage: 400 MG, QD
     Route: 048
     Dates: start: 20140829
  11. SPIRONOLACTONE. [Suspect]
     Active Substance: SPIRONOLACTONE
     Dosage: 25 MG, 2X/DAY
     Route: 065
  12. RIBAVIRIN. [Suspect]
     Active Substance: RIBAVIRIN
     Dosage: 0.5 DF, UNK
     Route: 065
     Dates: start: 20140926
  13. NORFLOXACIN [Concomitant]
     Active Substance: NORFLOXACIN
     Dosage: UNK
  14. RIBAVIRIN. [Suspect]
     Active Substance: RIBAVIRIN
     Indication: HEPATITIS C
     Dosage: 600 MG, BID
     Route: 048
     Dates: start: 20140829

REACTIONS (13)
  - Fatigue [Not Recovered/Not Resolved]
  - Angioplasty [Not Recovered/Not Resolved]
  - Dizziness [Not Recovered/Not Resolved]
  - Depression [Not Recovered/Not Resolved]
  - Decreased appetite [Not Recovered/Not Resolved]
  - Haemoglobin decreased [Not Recovered/Not Resolved]
  - Hypersomnia [Unknown]
  - Nausea [Not Recovered/Not Resolved]
  - Breast tenderness [Not Recovered/Not Resolved]
  - Visual acuity reduced [Not Recovered/Not Resolved]
  - Unevaluable event [Unknown]
  - Pollakiuria [Not Recovered/Not Resolved]
  - Visual impairment [Unknown]
